FAERS Safety Report 25140162 (Version 1)
Quarter: 2025Q1

REPORT INFORMATION
  Report Type: Spontaneous
  Country: FR (occurrence: FR)
  Receive Date: 20250331
  Receipt Date: 20250331
  Transmission Date: 20250409
  Serious: Yes (Hospitalization)
  Sender: MYLAN
  Company Number: None

PATIENT
  Age: 46 Year
  Sex: Male
  Weight: 77.5 kg

DRUGS (11)
  1. ETOPOSIDE [Suspect]
     Active Substance: ETOPOSIDE
     Indication: Adenocarcinoma
     Dates: start: 20241106, end: 20241106
  2. CARBOPLATIN [Suspect]
     Active Substance: CARBOPLATIN
     Indication: Adenocarcinoma
     Dates: start: 20241106, end: 20241106
  3. DURVALUMAB [Suspect]
     Active Substance: DURVALUMAB
     Indication: Adenocarcinoma
     Dates: start: 20241106, end: 20241106
  4. Uree [Concomitant]
  5. PREDNISOLONE [Concomitant]
     Active Substance: PREDNISOLONE
  6. POLYETHYLENE GLYCOLS [Concomitant]
     Active Substance: POLYETHYLENE GLYCOLS
  7. NICOPATCH [Concomitant]
     Active Substance: NICOTINE
  8. DIAZEPAM [Concomitant]
     Active Substance: DIAZEPAM
  9. SKENAN [Concomitant]
     Active Substance: MORPHINE SULFATE
  10. OLANZAPINE [Concomitant]
     Active Substance: OLANZAPINE
  11. ARANESP [Concomitant]
     Active Substance: DARBEPOETIN ALFA

REACTIONS (2)
  - Encephalitis autoimmune [Recovering/Resolving]
  - Thrombocytopenia [Not Recovered/Not Resolved]

NARRATIVE: CASE EVENT DATE: 20241127
